FAERS Safety Report 8188219-8 (Version None)
Quarter: 2012Q1

REPORT INFORMATION
  Report Type: 
  Country: None (occurrence: None)
  Receive Date: 20120306
  Receipt Date: 20120229
  Transmission Date: 20120608
  Serious: Yes (Death, Other)
  Sender: FDA-Public Use
  Company Number: JP-JNJFOC-20091003968

PATIENT
  Sex: Female
  Weight: 44 kg

DRUGS (8)
  1. DECADRON [Concomitant]
     Route: 048
     Dates: end: 20090824
  2. KENALOG [Concomitant]
     Indication: PRODUCT USED FOR UNKNOWN INDICATION
     Route: 061
     Dates: end: 20090819
  3. HEPARIN [Concomitant]
     Indication: PROPHYLAXIS
     Route: 061
     Dates: end: 20091011
  4. DOXORUBICIN HCL [Suspect]
     Indication: MALIGNANT PERITONEAL NEOPLASM
     Dosage: CYCLE 1
     Route: 042
     Dates: start: 20090819, end: 20090819
  5. DOXORUBICIN HCL [Suspect]
     Dosage: CYCLE 2
     Route: 042
     Dates: start: 20090916, end: 20090916
  6. SODIUM GUALENATE [Concomitant]
     Indication: PROPHYLAXIS
     Route: 002
     Dates: end: 20091011
  7. VITAMEDIN [Concomitant]
     Indication: PROPHYLAXIS
     Route: 048
     Dates: end: 20091011
  8. DECADRON [Concomitant]
     Indication: PROPHYLAXIS
     Route: 048
     Dates: start: 20090915, end: 20090921

REACTIONS (2)
  - MALIGNANT PERITONEAL NEOPLASM [None]
  - LUNG DISORDER [None]
